FAERS Safety Report 13673131 (Version 1)
Quarter: 2017Q2

REPORT INFORMATION
  Report Type: Spontaneous
  Country: FR (occurrence: FR)
  Receive Date: 20170621
  Receipt Date: 20170621
  Transmission Date: 20170830
  Serious: Yes (Other)
  Sender: FDA-Public Use
  Company Number: FR-TEVA-779107ROM

PATIENT
  Sex: Male

DRUGS (5)
  1. CRESTOR [Concomitant]
     Active Substance: ROSUVASTATIN CALCIUM
     Dosage: STARTED FOUR YEARS EARLIER
     Dates: start: 2013
  2. VOLTARENE [Suspect]
     Active Substance: DICLOFENAC SODIUM
     Dosage: STARTED ONE MONTH EARLIER
     Dates: start: 201705
  3. IRBESARTAN TEVA [Suspect]
     Active Substance: IRBESARTAN
     Dosage: .5 DOSAGE FORMS DAILY;
  4. IRBESARTAN TEVA [Suspect]
     Active Substance: IRBESARTAN
     Indication: HYPERTENSION
     Dosage: 1 DOSAGE FORMS DAILY;
     Dates: start: 201702
  5. KARDEGIC [Concomitant]
     Active Substance: ASPIRIN LYSINE
     Dosage: STARTED FOUR YEARS EARLIER
     Dates: start: 2013

REACTIONS (1)
  - Toxic skin eruption [Recovering/Resolving]

NARRATIVE: CASE EVENT DATE: 2017
